FAERS Safety Report 5703677-3 (Version None)
Quarter: 2008Q2

REPORT INFORMATION
  Report Type: 
  Country: None (occurrence: None)
  Receive Date: 20080413
  Receipt Date: 20080403
  Transmission Date: 20081010
  Serious: Yes (Hospitalization)
  Sender: FDA-Public Use
  Company Number: PHRM2008FR01198

PATIENT
  Age: 84 Year
  Sex: Female

DRUGS (6)
  1. ISOPTIN [Suspect]
     Dosage: 120 MG, QD
     Route: 048
     Dates: start: 20080306, end: 20080323
  2. SERESTA [Suspect]
     Dosage: 50 MG, QD
     Route: 048
     Dates: end: 20080323
  3. BUFLOMEDIL [Suspect]
     Dosage: 1 DF, BID
     Route: 048
     Dates: end: 20080323
  4. PLAVIX [Suspect]
     Dosage: 75 MG, QD
     Route: 048
     Dates: end: 20080323
  5. AMPECYCLAL [Suspect]
     Dosage: 600 MG, BID
     Route: 048
     Dates: end: 20080323
  6. VISKEN [Suspect]
     Dosage: 7.5 MG, QD
     Route: 048
     Dates: end: 20080323

REACTIONS (7)
  - ASTHENIA [None]
  - ATRIOVENTRICULAR BLOCK [None]
  - BRADYCARDIA [None]
  - CATHETERISATION CARDIAC [None]
  - DIZZINESS [None]
  - LOSS OF CONSCIOUSNESS [None]
  - MALAISE [None]
